FAERS Safety Report 20824732 (Version 1)
Quarter: 2022Q2

REPORT INFORMATION
  Report Type: Report from Study
  Country: US (occurrence: US)
  Receive Date: 20220513
  Receipt Date: 20220513
  Transmission Date: 20220721
  Serious: No
  Sender: FDA-Public Use
  Company Number: US-PHARMACOVIGILANCE-US-KAD-22-00130

PATIENT
  Age: 51 Year

DRUGS (3)
  1. REZUROCK [Suspect]
     Active Substance: BELUMOSUDIL
     Indication: Graft versus host disease
     Dosage: 200 MILLIGRAM, QD
     Dates: start: 20211203, end: 20220201
  2. IMBRUVICA [Concomitant]
     Active Substance: IBRUTINIB
     Indication: Graft versus host disease
     Dosage: UNK
     Dates: start: 2021, end: 20211203
  3. IMBRUVICA [Concomitant]
     Active Substance: IBRUTINIB
     Dosage: UNK
     Dates: start: 20220201

REACTIONS (2)
  - Graft versus host disease [Unknown]
  - Drug ineffective [Unknown]

NARRATIVE: CASE EVENT DATE: 20211203
